FAERS Safety Report 12943510 (Version 1)
Quarter: 2016Q4

REPORT INFORMATION
  Report Type: Report from Study
  Country: US (occurrence: US)
  Receive Date: 20161115
  Receipt Date: 20161115
  Transmission Date: 20170207
  Serious: Yes (Other)
  Sender: FDA-Public Use
  Company Number: US-VIIV HEALTHCARE LIMITED-US2016GSK166991

PATIENT

DRUGS (11)
  1. BUSULPHAN [Suspect]
     Active Substance: BUSULFAN
     Indication: CHRONIC GRANULOMATOUS DISEASE
     Dosage: EVERY 12 HOURS P.O. OR I.V. ON DAY ?10 TO DAY ?7
  2. METHYLPREDNISOLONE. [Suspect]
     Active Substance: METHYLPREDNISOLONE
     Indication: PROPHYLAXIS AGAINST GRAFT VERSUS HOST DISEASE
     Dosage: UNK
  3. METHYLPREDNISOLONE. [Suspect]
     Active Substance: METHYLPREDNISOLONE
     Dosage: 1 TO 2 MG/KG, QD (FROM DAY +3 TO DAY +21)
     Route: 042
  4. FOSPHENYTOIN [Suspect]
     Active Substance: FOSPHENYTOIN\FOSPHENYTOIN SODIUM
     Indication: CONVULSION PROPHYLAXIS
  5. MARAVIROC [Suspect]
     Active Substance: MARAVIROC
     Indication: PRODUCT USED FOR UNKNOWN INDICATION
     Dosage: DAY -3 TO DAY +30
  6. ANTI-THYMOCYTE GLOBULIN (RABBIT) NOS [Suspect]
     Active Substance: LAPINE T-LYMPHOCYTE IMMUNE GLOBULIN
     Dosage: 15 MG/KG, QD (DAILY DOSING ON DAYS +1 AND +2)
     Route: 042
  7. ANTI-THYMOCYTE GLOBULIN (RABBIT) NOS [Suspect]
     Active Substance: LAPINE T-LYMPHOCYTE IMMUNE GLOBULIN
     Indication: CHRONIC GRANULOMATOUS DISEASE
     Dosage: 15 MG/KG, BID ON DAYS -2 AND -1
     Route: 042
  8. DIPHENHYDRAMINE. [Suspect]
     Active Substance: DIPHENHYDRAMINE
     Indication: PREMEDICATION
  9. ACETAMINOPHEN. [Suspect]
     Active Substance: ACETAMINOPHEN
     Indication: PREMEDICATION
  10. CYCLOSPORINE. [Suspect]
     Active Substance: CYCLOSPORINE
     Indication: PROPHYLAXIS AGAINST GRAFT VERSUS HOST DISEASE
     Dosage: 1 TO 2 MG/KG, QD (DAY -3)
     Route: 042
  11. CYCLOPHOSPHAMIDE. [Suspect]
     Active Substance: CYCLOPHOSPHAMIDE
     Indication: CHRONIC GRANULOMATOUS DISEASE
     Dosage: 50 MG/KG, QD BETWEEN DAY -5 TO DAY -2
     Route: 042

REACTIONS (1)
  - Venoocclusive liver disease [Recovered/Resolved]
